FAERS Safety Report 7706768-0 (Version None)
Quarter: 2011Q3

REPORT INFORMATION
  Report Type: 
  Country: None (occurrence: None)
  Receive Date: 20110824
  Receipt Date: 20110818
  Transmission Date: 20111222
  Serious: Yes (Other)
  Sender: FDA-Public Use
  Company Number: GB-ROCHE-798098

PATIENT
  Sex: Female

DRUGS (1)
  1. AVASTIN [Suspect]
     Dosage: DOSE AND FREQUENCY: NOT REPORTED
     Route: 065
     Dates: start: 20110601

REACTIONS (3)
  - DEMENTIA [None]
  - EYE INFLAMMATION [None]
  - AMNESIA [None]
